FAERS Safety Report 15483756 (Version 1)
Quarter: 2018Q4

REPORT INFORMATION
  Report Type: Spontaneous
  Country: US (occurrence: US)
  Receive Date: 20181010
  Receipt Date: 20181010
  Transmission Date: 20190205
  Serious: Yes (Other)
  Sender: FDA-Public Use
  Company Number: None

PATIENT
  Age: 29 Year
  Sex: Male
  Weight: 75.15 kg

DRUGS (1)
  1. FINASTERIDE. [Suspect]
     Active Substance: FINASTERIDE
     Indication: ANDROGENETIC ALOPECIA
     Dosage: ?          QUANTITY:1 TABLET(S);?
     Route: 048

REACTIONS (9)
  - Testicular pain [None]
  - Insomnia [None]
  - Penis disorder [None]
  - Anxiety [None]
  - Muscle atrophy [None]
  - Mental disorder [None]
  - Sexual dysfunction [None]
  - Testicular atrophy [None]
  - Depression [None]

NARRATIVE: CASE EVENT DATE: 20180810
